FAERS Safety Report 8289933-6 (Version None)
Quarter: 2012Q2

REPORT INFORMATION
  Report Type: 
  Country: None (occurrence: None)
  Receive Date: 20120417
  Receipt Date: 20120409
  Transmission Date: 20120825
  Serious: Yes (Hospitalization)
  Sender: FDA-Public Use
  Company Number: US-US-EMD SERONO, INC.-7124960

PATIENT
  Sex: Female

DRUGS (4)
  1. UNSPECIFIED MEDICATION [Concomitant]
     Indication: THYROID DISORDER
  2. REBIF [Suspect]
     Indication: MULTIPLE SCLEROSIS
     Route: 058
     Dates: start: 20100412
  3. NAPROXEN (ALEVE) [Concomitant]
     Indication: PREMEDICATION
  4. UNSPECIFIED MEDICATION [Concomitant]
     Indication: BONE DISORDER

REACTIONS (6)
  - MUSCLE SPASTICITY [None]
  - CARDIOMYOPATHY [None]
  - DYSGEUSIA [None]
  - PYREXIA [None]
  - DECREASED APPETITE [None]
  - COSTOCHONDRITIS [None]
